FAERS Safety Report 19458928 (Version 1)
Quarter: 2021Q2

REPORT INFORMATION
  Report Type: Spontaneous
  Country: NL (occurrence: LT)
  Receive Date: 20210624
  Receipt Date: 20210624
  Transmission Date: 20210717
  Serious: Yes (Other)
  Sender: FDA-Public Use
  Company Number: LT-FRESENIUS KABI-FK202106081

PATIENT
  Age: 69 Year
  Sex: Female

DRUGS (2)
  1. CYTARABINE (MANUFACTURER UNKNOWN) [Suspect]
     Active Substance: CYTARABINE
     Indication: PRODUCT USED FOR UNKNOWN INDICATION
     Dosage: 400 MG
     Route: 065
     Dates: start: 20200417, end: 20200422
  2. MIDOSTAURIN [Suspect]
     Active Substance: MIDOSTAURIN
     Indication: PRODUCT USED FOR UNKNOWN INDICATION
     Dosage: 100 MG
     Route: 065
     Dates: start: 20200424, end: 20200517

REACTIONS (4)
  - Lung disorder [Unknown]
  - Fatigue [Recovered/Resolved]
  - Ejection fraction decreased [Not Recovered/Not Resolved]
  - Left ventricular failure [Unknown]

NARRATIVE: CASE EVENT DATE: 20200501
